FAERS Safety Report 6855057-5 (Version None)
Quarter: 2010Q3

REPORT INFORMATION
  Report Type: 
  Country: None (occurrence: None)
  Receive Date: 20100717
  Receipt Date: 20081125
  Transmission Date: 20110219
  Serious: Yes (Disabling, Other)
  Sender: FDA-Public Use
  Company Number: US-PFIZER INC-2008001793

PATIENT
  Age: 45 Year
  Sex: Female

DRUGS (2)
  1. CHAMPIX [Suspect]
     Dosage: 1 MG, 2X/DAY
     Route: 048
     Dates: start: 20070730, end: 20070817
  2. FLUOXETINE HCL [Interacting]
     Dosage: 20 MG, UNK
     Route: 048
     Dates: start: 20000101

REACTIONS (2)
  - DEPRESSION [None]
  - DRUG INTERACTION [None]
